FAERS Safety Report 8259613-1 (Version None)
Quarter: 2012Q2

REPORT INFORMATION
  Report Type: 
  Country: None (occurrence: None)
  Receive Date: 20120404
  Receipt Date: 20120326
  Transmission Date: 20120825
  Serious: Yes (Other)
  Sender: FDA-Public Use
  Company Number: PHHY2012MX027252

PATIENT
  Sex: Female

DRUGS (2)
  1. RULITEC [Concomitant]
     Indication: AMYOTROPHIC LATERAL SCLEROSIS
     Dosage: 0.5 DF, HALF TABLET AT MORNING AND HALF TABLET AT NIGHT
     Dates: start: 20101001
  2. EXFORGE HCT [Suspect]
     Indication: HYPERTENSION
     Dosage: 1 DF X (160/5/12.5 MG), ONCE A DAY
     Dates: start: 20111001

REACTIONS (5)
  - SPEECH DISORDER [None]
  - SALIVARY HYPERSECRETION [None]
  - GAIT DISTURBANCE [None]
  - RESPIRATORY DISORDER [None]
  - DYSPHAGIA [None]
